FAERS Safety Report 9940003 (Version 1)
Quarter: 2014Q1

REPORT INFORMATION
  Report Type: Report from Study
  Country: US (occurrence: US)
  Receive Date: 20140303
  Receipt Date: 20140303
  Transmission Date: 20141002
  Serious: No
  Sender: FDA-Public Use
  Company Number: US-ABBVIE-13P-163-1034577-00

PATIENT
  Age: 55 Year
  Sex: Female
  Weight: 66.74 kg

DRUGS (3)
  1. HUMIRA PEN [Suspect]
     Indication: PSORIASIS
     Route: 058
     Dates: start: 20120828
  2. MICROZID [Concomitant]
     Indication: HYPERTENSION
     Dosage: 12.5MG DAILY
  3. ZESTRIL [Concomitant]
     Indication: HYPERTENSION
     Dosage: 20MG DAILY

REACTIONS (4)
  - Off label use [Unknown]
  - Vaginal infection [Recovered/Resolved]
  - Gastrointestinal infection [Recovering/Resolving]
  - Diarrhoea [Recovering/Resolving]
